FAERS Safety Report 19780009 (Version 1)
Quarter: 2021Q3

REPORT INFORMATION
  Report Type: Spontaneous
  Country: CN (occurrence: CN)
  Receive Date: 20210902
  Receipt Date: 20210902
  Transmission Date: 20211014
  Serious: Yes (Other)
  Sender: FDA-Public Use
  Company Number: CN-009507513-2108CHN007752

PATIENT
  Age: 66 Year
  Sex: Male
  Weight: 64.4 kg

DRUGS (8)
  1. CAPECITABINE. [Suspect]
     Active Substance: CAPECITABINE
     Indication: GASTRIC CANCER
     Dosage: 2 GRAM AFTER BREAKFAST, ONCE A DAY
     Route: 048
     Dates: start: 20210728, end: 20210811
  2. CAPECITABINE. [Suspect]
     Active Substance: CAPECITABINE
     Dosage: 1.5 GRAM AFTER DINNER, ONCE A DAY
     Route: 048
     Dates: start: 20210728, end: 20210811
  3. KEYTRUDA [Suspect]
     Active Substance: PEMBROLIZUMAB
     Indication: GASTRIC CANCER
     Dosage: 200 MILLIGRAM, SINGLE TREATMENT
     Route: 041
     Dates: start: 20210802, end: 20210802
  4. TRASTUZUMAB. [Suspect]
     Active Substance: TRASTUZUMAB
     Indication: GASTRIC CANCER
     Dosage: 512 MILLIGRAM, SINGLE TREATMENT
     Route: 041
     Dates: start: 20210731, end: 20210731
  5. SODIUM CHLORIDE. [Concomitant]
     Active Substance: SODIUM CHLORIDE
     Dosage: 100 MILLILITER, SINGLE TREATMENT
     Route: 041
     Dates: start: 20210802, end: 20210802
  6. SODIUM CHLORIDE. [Concomitant]
     Active Substance: SODIUM CHLORIDE
     Indication: GASTRIC CANCER
     Dosage: 250 MILLILITER, SINGLE TREATMENT
     Route: 041
     Dates: start: 20210731, end: 20210731
  7. GLUCOSE [Concomitant]
     Active Substance: DEXTROSE
     Indication: GASTRIC CANCER
     Dosage: 500 MILLILITER, SINGLE TREATMENT
     Route: 041
     Dates: start: 20210728, end: 20210728
  8. OXALIPLATIN. [Suspect]
     Active Substance: OXALIPLATIN
     Indication: GASTRIC CANCER
     Dosage: 230 MILLIGRAM, SINGLE TREATMENT
     Route: 041
     Dates: start: 20210728, end: 20210728

REACTIONS (2)
  - Product use in unapproved indication [Unknown]
  - Platelet count decreased [Recovered/Resolved]

NARRATIVE: CASE EVENT DATE: 20210802
